FAERS Safety Report 6567858-1 (Version None)
Quarter: 2010Q1

REPORT INFORMATION
  Report Type: 
  Country: None (occurrence: None)
  Receive Date: 20100203
  Receipt Date: 20100125
  Transmission Date: 20100710
  Serious: Yes (Hospitalization)
  Sender: FDA-Public Use
  Company Number: US-JNJFOC-20100111458

PATIENT
  Sex: Female
  Weight: 96.62 kg

DRUGS (13)
  1. DURAGESIC-100 [Suspect]
     Indication: NECK PAIN
     Route: 062
  2. DURAGESIC-100 [Suspect]
     Indication: BACK PAIN
     Route: 062
  3. DURAGESIC-100 [Suspect]
     Route: 062
  4. DURAGESIC-100 [Suspect]
     Route: 062
  5. INSULIN [Concomitant]
     Indication: DIABETES MELLITUS
     Dosage: 40 UNITS
     Route: 058
  6. PROPOXYPHENE [Concomitant]
     Indication: BREAKTHROUGH PAIN
     Dosage: N100 TABLETS
     Route: 048
  7. NITROGLYCERIN [Concomitant]
     Indication: CARDIAC DISORDER
     Route: 062
  8. ACTOS [Concomitant]
     Indication: DIABETES MELLITUS
     Route: 048
  9. VITAMIN D [Concomitant]
     Indication: VITAMIN SUPPLEMENTATION
     Route: 048
  10. PLAVIX [Concomitant]
     Indication: MYOCARDIAL INFARCTION
     Route: 065
  11. SINGULAIR [Concomitant]
     Indication: SEASONAL ALLERGY
     Route: 065
  12. VYTORIN [Concomitant]
     Indication: BLOOD CHOLESTEROL INCREASED
     Route: 065
  13. BUMETANIDE [Concomitant]
     Indication: SWELLING
     Route: 065

REACTIONS (10)
  - BLOOD CHOLESTEROL INCREASED [None]
  - CARDIAC FAILURE CONGESTIVE [None]
  - DRUG ADMINISTERED AT INAPPROPRIATE SITE [None]
  - DRUG INEFFECTIVE [None]
  - MYOCARDIAL INFARCTION [None]
  - PRODUCT ADHESION ISSUE [None]
  - SEASONAL ALLERGY [None]
  - SWELLING [None]
  - WEIGHT DECREASED [None]
  - WRONG TECHNIQUE IN DRUG USAGE PROCESS [None]
